FAERS Safety Report 10394793 (Version 1)
Quarter: 2014Q3

REPORT INFORMATION
  Report Type: Spontaneous
  Country: US (occurrence: US)
  Receive Date: 20140820
  Receipt Date: 20140820
  Transmission Date: 20150326
  Serious: No
  Sender: FDA-Public Use
  Company Number: US-BIOGENIDEC-2014BI080841

PATIENT
  Sex: Female

DRUGS (3)
  1. REBIF [Concomitant]
     Active Substance: INTERFERON BETA-1A
  2. AVONEX [Suspect]
     Active Substance: INTERFERON BETA-1A
     Indication: PRODUCT USED FOR UNKNOWN INDICATION
     Route: 030
  3. TYSABRI [Concomitant]
     Active Substance: NATALIZUMAB

REACTIONS (9)
  - Pain [Unknown]
  - Drug withdrawal syndrome [Unknown]
  - Aphagia [Unknown]
  - Malaise [Unknown]
  - Asthenia [Unknown]
  - Hangover [Unknown]
  - Drug ineffective [Unknown]
  - Hypersensitivity [Unknown]
  - Nausea [Unknown]
